FAERS Safety Report 4475371-0 (Version None)
Quarter: 2004Q4

REPORT INFORMATION
  Report Type: 
  Country: None (occurrence: None)
  Receive Date: 20041014
  Receipt Date: 20041014
  Transmission Date: 20050328
  Serious: Yes (Life-Threatening, Hospitalization)
  Sender: FDA-Public Use
  Company Number: None

PATIENT
  Age: 28 Year
  Sex: Female
  Weight: 69.4003 kg

DRUGS (1)
  1. TRIPHASIL-21 [Suspect]
     Indication: POST COITAL CONTRACEPTION
     Dosage: TWO PO BID
     Route: 048
     Dates: start: 20040819

REACTIONS (1)
  - STEVENS-JOHNSON SYNDROME [None]
